FAERS Safety Report 4788357-3 (Version None)
Quarter: 2005Q4

REPORT INFORMATION
  Report Type: 
  Country: None (occurrence: None)
  Receive Date: 20051005
  Receipt Date: 20050927
  Transmission Date: 20060501
  Serious: Yes (Hospitalization)
  Sender: FDA-Public Use
  Company Number: FR-BRISTOL-MYERS SQUIBB COMPANY-13126214

PATIENT
  Age: 51 Year
  Sex: Male

DRUGS (4)
  1. REYATAZ [Suspect]
     Indication: HIV INFECTION
     Route: 048
     Dates: start: 20050216, end: 20050318
  2. NORVIR [Suspect]
     Indication: HIV INFECTION
     Route: 048
     Dates: start: 20050216, end: 20050318
  3. VIRAMUNE [Concomitant]
     Indication: HIV INFECTION
     Dates: start: 20001113
  4. EPIVIR [Concomitant]
     Indication: HIV INFECTION
     Dates: start: 20040204

REACTIONS (1)
  - PANCREATITIS [None]
